FAERS Safety Report 5631657-5 (Version None)
Quarter: 2008Q1

REPORT INFORMATION
  Report Type: 
  Country: None (occurrence: None)
  Receive Date: 20080211
  Receipt Date: 20080131
  Transmission Date: 20080703
  Serious: Yes (Life-Threatening, Hospitalization)
  Sender: FDA-Public Use
  Company Number: WSDF_00701

PATIENT
  Age: 12 Year
  Sex: Female
  Weight: 105 kg

DRUGS (1)
  1. WINRHO SDF [Suspect]
     Indication: THROMBOCYTOPENIC PURPURA
     Dosage: 50 UG/KG IV
     Route: 042

REACTIONS (6)
  - CEREBRAL VENOUS THROMBOSIS [None]
  - ENCEPHALOPATHY [None]
  - HAEMOLYTIC ANAEMIA [None]
  - HAEMORRHAGIC INFARCTION [None]
  - INTRACRANIAL PRESSURE INCREASED [None]
  - OPTIC ATROPHY [None]
